FAERS Safety Report 10431200 (Version 1)
Quarter: 2014Q3

REPORT INFORMATION
  Report Type: Spontaneous
  Country: IT (occurrence: IT)
  Receive Date: 20140904
  Receipt Date: 20140904
  Transmission Date: 20150326
  Serious: Yes (Other)
  Sender: FDA-Public Use
  Company Number: PHHY2014IT109998

PATIENT
  Age: 63 Year
  Sex: Female

DRUGS (2)
  1. GARDENALE [Concomitant]
     Active Substance: PHENOBARBITAL
     Dosage: 100 MG, UNK
  2. ACETYLSALICYLIC ACID [Suspect]
     Active Substance: ASPIRIN
     Dosage: UNK UKN, UNK
     Dates: start: 20140101, end: 20140720

REACTIONS (1)
  - Melaena [Recovering/Resolving]

NARRATIVE: CASE EVENT DATE: 20140713
